FAERS Safety Report 24075494 (Version 1)
Quarter: 2024Q3

REPORT INFORMATION
  Report Type: Spontaneous
  Country: DK (occurrence: DK)
  Receive Date: 20240710
  Receipt Date: 20240710
  Transmission Date: 20241017
  Serious: Yes (Hospitalization, Other)
  Sender: TEVA
  Company Number: None

PATIENT
  Age: 8 Decade
  Sex: Female

DRUGS (7)
  1. ALENDRONIC ACID [Suspect]
     Active Substance: ALENDRONIC ACID
     Indication: Osteoporosis
     Route: 048
     Dates: start: 2013, end: 2024
  2. ALBUTEROL [Concomitant]
     Active Substance: ALBUTEROL
     Indication: Bronchospasm
     Route: 065
     Dates: start: 20240206
  3. spirolto [Concomitant]
     Indication: Chronic obstructive pulmonary disease
     Dosage: STRENGTH: 2.5+2.5 MICROGRAMS
     Route: 065
     Dates: start: 20230808
  4. ATORVASTATIN [Concomitant]
     Active Substance: ATORVASTATIN
     Indication: Hypercholesterolaemia
     Route: 065
     Dates: start: 20220616
  5. PROPAL [Concomitant]
     Indication: Hypertension
     Dosage: PROPAL RETARDATION
     Route: 065
     Dates: start: 20221220
  6. hjertemagnyl [Concomitant]
     Indication: Anticoagulant therapy
     Route: 065
     Dates: start: 20111117
  7. LANSOPRAZOLE [Concomitant]
     Active Substance: LANSOPRAZOLE
     Indication: Gastrooesophageal reflux disease
     Route: 065
     Dates: start: 20170313

REACTIONS (4)
  - Osteonecrosis of jaw [Not Recovered/Not Resolved]
  - Abscess jaw [Unknown]
  - Refeeding syndrome [Unknown]
  - Swelling face [Unknown]

NARRATIVE: CASE EVENT DATE: 20210101
